FAERS Safety Report 6448260-X (Version None)
Quarter: 2009Q4

REPORT INFORMATION
  Report Type: 
  Country: None (occurrence: None)
  Receive Date: 20091112
  Receipt Date: 20090714
  Transmission Date: 20100525
  Serious: Yes (Other)
  Sender: FDA-Public Use
  Company Number: ALL1-2009-01927

PATIENT
  Age: 54 Year
  Sex: Male

DRUGS (1)
  1. AGRYLIN [Suspect]
     Indication: DRUG USE FOR UNKNOWN INDICATION
     Dosage: 0.5MG, 2X/DAY; BID, ORAL
     Route: 048

REACTIONS (1)
  - PERICARDITIS [None]
